FAERS Safety Report 7334720-6 (Version None)
Quarter: 2011Q1

REPORT INFORMATION
  Report Type: 
  Country: None (occurrence: None)
  Receive Date: 20110307
  Receipt Date: 20110221
  Transmission Date: 20110831
  Serious: Yes (Other)
  Sender: FDA-Public Use
  Company Number: PHHY2011BR15216

PATIENT
  Sex: Female
  Weight: 55 kg

DRUGS (6)
  1. DEFLAZACORT [Concomitant]
     Indication: MUSCULOSKELETAL PAIN
     Dosage: 1 DF, DAILY
     Route: 048
  2. HYDROXYCHLOROQUINE SULFATE [Concomitant]
     Indication: MUSCULOSKELETAL PAIN
     Dosage: A HALF TABLET DAILY
     Route: 048
  3. DIOVAN [Suspect]
     Indication: HYPERTENSION
     Dosage: 320 MG, A HALF TABLET DAILY
     Route: 048
  4. ATENOLOL [Concomitant]
     Dosage: 50 MG, ONE TABLET DAILY
     Route: 048
  5. ATENOLOL [Concomitant]
     Indication: HYPERTENSION
     Dosage: 25 MG, ONE TABLET DAILY
     Route: 048
  6. CODERGOCRINE MESILATE [Concomitant]
     Indication: DIZZINESS
     Dosage: 1 DF, DAILY
     Route: 048

REACTIONS (5)
  - DRY MOUTH [None]
  - NERVOUSNESS [None]
  - INCORRECT DOSE ADMINISTERED [None]
  - WEIGHT DECREASED [None]
  - DEAFNESS [None]
